FAERS Safety Report 6982716-6 (Version None)
Quarter: 2010Q3

REPORT INFORMATION
  Report Type: 
  Country: None (occurrence: None)
  Receive Date: 20100914
  Receipt Date: 20100312
  Transmission Date: 20110219
  Serious: No
  Sender: FDA-Public Use
  Company Number: US-PFIZER INC-2010032472

PATIENT
  Sex: Female

DRUGS (6)
  1. LYRICA [Suspect]
     Indication: NEUROPATHY PERIPHERAL
     Dosage: 50 MG, 1X/DAY
     Route: 048
     Dates: start: 20100302, end: 20100303
  2. GLUCOVANCE [Concomitant]
     Indication: DIABETES MELLITUS
     Dosage: 5 MG/500 MG, 1X/DAY
     Route: 048
  3. METFORMIN [Concomitant]
     Indication: DIABETES MELLITUS
     Dosage: 500 MG, 1X/DAY
     Route: 048
  4. POTASSIUM [Concomitant]
     Dosage: 10 MEQ, 1X/DAY
     Route: 048
  5. LEVOXYL [Concomitant]
     Indication: THYROID DISORDER
     Dosage: 0.1 UG, 1X/DAY
     Route: 048
  6. DYAZIDE [Concomitant]
     Indication: DIURETIC THERAPY
     Dosage: 37.5 MG/25 MG
     Route: 048

REACTIONS (1)
  - OEDEMA PERIPHERAL [None]
